FAERS Safety Report 7768490-4 (Version None)
Quarter: 2011Q3

REPORT INFORMATION
  Report Type: 
  Country: None (occurrence: None)
  Receive Date: 20110922
  Receipt Date: 20101008
  Transmission Date: 20111222
  Serious: No
  Sender: FDA-Public Use
  Company Number: US-ASTRAZENECA-2010SE47956

PATIENT
  Age: 14238 Day
  Sex: Male

DRUGS (2)
  1. SEROQUEL [Suspect]
     Indication: BIPOLAR DISORDER
     Route: 048
     Dates: end: 20101007
  2. SEROQUEL [Suspect]
     Route: 048
     Dates: end: 20101007

REACTIONS (2)
  - DRUG DOSE OMISSION [None]
  - MANIA [None]
